FAERS Safety Report 11121824 (Version 1)
Quarter: 2015Q2

REPORT INFORMATION
  Report Type: Spontaneous
  Country: GB (occurrence: GB)
  Receive Date: 20150519
  Receipt Date: 20150519
  Transmission Date: 20150821
  Serious: Yes (Hospitalization)
  Sender: FDA-Public Use
  Company Number: GB-TEVA-562801ACC

PATIENT
  Age: 68 Year
  Sex: Male
  Weight: 87 kg

DRUGS (8)
  1. CISPLATIN. [Suspect]
     Active Substance: CISPLATIN
     Indication: ADENOCARCINOMA GASTRIC
     Dosage: DOSE AT LAST ADMINISTRATION 122MG
     Route: 042
     Dates: start: 20110915
  2. XELODA [Suspect]
     Active Substance: CAPECITABINE
     Indication: GASTRIC CANCER
     Dosage: DOSE AT LAST ADMINISTRATION 1250 MG
     Route: 048
     Dates: start: 20110915
  3. DOXAZOSIN [Concomitant]
     Active Substance: DOXAZOSIN\DOXAZOSIN MESYLATE
     Route: 048
  4. DILTIAZEM [Concomitant]
     Active Substance: DILTIAZEM
     Route: 048
  5. DIGOXIN. [Concomitant]
     Active Substance: DIGOXIN
     Route: 048
  6. EPIRUBICIN [Suspect]
     Active Substance: EPIRUBICIN
     Indication: ADENOCARCINOMA GASTRIC
     Dosage: DOSE AT LAST ADMINISTRATION 100 MG
     Route: 042
     Dates: start: 20110915
  7. RAMIPRIL. [Concomitant]
     Active Substance: RAMIPRIL
     Route: 048
  8. AVASTIN [Suspect]
     Active Substance: BEVACIZUMAB
     Indication: GASTRIC CANCER
     Route: 042
     Dates: start: 20110915

REACTIONS (1)
  - Gastrointestinal pain [Recovered/Resolved]

NARRATIVE: CASE EVENT DATE: 20110919
